FAERS Safety Report 17066610 (Version 2)
Quarter: 2020Q1

REPORT INFORMATION
  Report Type: Spontaneous
  Country: US (occurrence: US)
  Receive Date: 20191122
  Receipt Date: 20200109
  Transmission Date: 20200409
  Serious: No
  Sender: FDA-Public Use
  Company Number: US-ELI_LILLY_AND_COMPANY-US201911007877

PATIENT
  Age: 53 Year
  Sex: Male

DRUGS (1)
  1. EMGALITY [Suspect]
     Active Substance: GALCANEZUMAB-GNLM
     Indication: MIGRAINE
     Dosage: UNK
     Route: 065
     Dates: start: 20190711

REACTIONS (12)
  - Migraine [Unknown]
  - Dyspnoea [Unknown]
  - Nausea [Unknown]
  - Oropharyngeal pain [Unknown]
  - Body temperature fluctuation [Unknown]
  - Pain in extremity [Unknown]
  - Abdominal pain upper [Unknown]
  - Tremor [Unknown]
  - Dizziness [Unknown]
  - Throat tightness [Unknown]
  - Hypoaesthesia [Unknown]
  - Chest pain [Unknown]

NARRATIVE: CASE EVENT DATE: 20191111
